FAERS Safety Report 10245928 (Version 1)
Quarter: 2014Q2

REPORT INFORMATION
  Report Type: Spontaneous
  Country: US (occurrence: US)
  Receive Date: 20140619
  Receipt Date: 20140619
  Transmission Date: 20141212
  Serious: Yes (Other)
  Sender: FDA-Public Use
  Company Number: US-AMGEN INC.-USASP2014045486

PATIENT
  Age: 62 Year
  Sex: Female

DRUGS (2)
  1. ENBREL [Suspect]
     Indication: PSORIASIS
     Dosage: 50 MG, QWK
     Route: 065
     Dates: start: 20130423, end: 201404
  2. METHOTREXATE [Concomitant]
     Dosage: 15 MG, QWK

REACTIONS (2)
  - Mass [Recovered/Resolved]
  - Hepatic cirrhosis [Not Recovered/Not Resolved]
